FAERS Safety Report 6872060-X (Version None)
Quarter: 2010Q3

REPORT INFORMATION
  Report Type: 
  Country: None (occurrence: None)
  Receive Date: 20100723
  Receipt Date: 20100713
  Transmission Date: 20110219
  Serious: Yes (Death)
  Sender: FDA-Public Use
  Company Number: JP-PFIZER INC-2010065889

PATIENT
  Age: 72 Year
  Sex: Male
  Weight: 55.6 kg

DRUGS (8)
  1. SUNITINIB MALATE [Suspect]
     Indication: GASTROINTESTINAL STROMAL TUMOUR
     Dosage: 50 MG, 1X/DAY
     Route: 048
     Dates: start: 20080903
  2. NOVAMIN [Concomitant]
     Dosage: 1 DF, 3X/DAY
     Route: 048
     Dates: start: 20080908
  3. LENDORMIN [Concomitant]
     Dosage: 1 DF, 1X/DAY
     Route: 048
  4. LOXOPROFEN [Concomitant]
     Indication: GASTROINTESTINAL STROMAL TUMOUR
     Dosage: 1 DF, 3X/DAY
     Route: 048
  5. MORPHINE HYDROCHLORIDE [Concomitant]
     Indication: GASTROINTESTINAL STROMAL TUMOUR
     Dosage: 5 MG, 1X/DAY
     Route: 048
  6. URINORM [Concomitant]
     Dosage: 50 MG, 1X/DAY
     Route: 048
     Dates: start: 20080912
  7. OXYCONTIN [Concomitant]
     Indication: GASTROINTESTINAL STROMAL TUMOUR
     Dosage: 10 MG, 2X/DAY
     Route: 048
     Dates: start: 20080905
  8. DEXAMETHASONE [Concomitant]
     Dosage: UNK
     Route: 062
     Dates: start: 20080924

REACTIONS (1)
  - ASCITES [None]
